FAERS Safety Report 8373078-0 (Version None)
Quarter: 2012Q2

REPORT INFORMATION
  Report Type: 
  Country: None (occurrence: None)
  Receive Date: 20120521
  Receipt Date: 20120511
  Transmission Date: 20120825
  Serious: Yes (Hospitalization, Other)
  Sender: FDA-Public Use
  Company Number: PHHY2012MX037169

PATIENT
  Sex: Male

DRUGS (2)
  1. LANTUS [Concomitant]
     Indication: DIABETES MELLITUS
     Dosage: 20 IU, QD
     Dates: start: 20080401
  2. EXFORGE HCT [Suspect]
     Indication: HYPERTENSION
     Dosage: 0.5 TABLET (320/10/25 MG) EVERY 12 HOURS
     Route: 048
     Dates: start: 20120307, end: 20120401

REACTIONS (8)
  - PLATELET COUNT INCREASED [None]
  - ANAEMIA [None]
  - JOINT SWELLING [None]
  - WRONG TECHNIQUE IN DRUG USAGE PROCESS [None]
  - PAIN IN EXTREMITY [None]
  - BLOOD GLUCOSE INCREASED [None]
  - RENAL FAILURE [None]
  - CARDIOMEGALY [None]
